FAERS Safety Report 9793676 (Version 3)
Quarter: 2014Q1

REPORT INFORMATION
  Report Type: Spontaneous
  Country: US (occurrence: US)
  Receive Date: 20140102
  Receipt Date: 20140317
  Transmission Date: 20141002
  Serious: Yes (Other)
  Sender: FDA-Public Use
  Company Number: US-AMGEN-USASP2013086346

PATIENT
  Age: 61 Year
  Sex: Female
  Weight: 60.32 kg

DRUGS (3)
  1. ENBREL [Suspect]
     Indication: ARTHRITIS
     Dosage: 50 MG, 2 TIMES/WK
     Route: 058
     Dates: start: 201311
  2. ENBREL [Suspect]
     Indication: ANKYLOSING SPONDYLITIS
  3. ENBREL [Suspect]
     Indication: PSORIASIS

REACTIONS (7)
  - Colostomy [Unknown]
  - Pruritus [Recovered/Resolved]
  - Malaise [Not Recovered/Not Resolved]
  - General physical health deterioration [Not Recovered/Not Resolved]
  - Dermatitis [Unknown]
  - Erythema [Unknown]
  - Injection site erythema [Unknown]
